FAERS Safety Report 4415843-8 (Version None)
Quarter: 2004Q3

REPORT INFORMATION
  Report Type: 
  Country: None (occurrence: None)
  Receive Date: 20040730
  Receipt Date: 20040722
  Transmission Date: 20050211
  Serious: Yes (Other)
  Sender: FDA-Public Use
  Company Number: 2004-02-0450

PATIENT
  Age: 65 Year
  Sex: Male
  Weight: 63 kg

DRUGS (8)
  1. REBETOL [Suspect]
     Indication: HEPATITIS C
     Dosage: 800 MG QD ORAL
     Route: 048
     Dates: start: 20020221, end: 20020806
  2. INTRON A [Suspect]
     Indication: HEPATITIS C
     Dosage: 10 MU QD-TIW* INRAMUSCULAR
     Route: 030
     Dates: start: 20020221, end: 20020307
  3. INTRON A [Suspect]
     Indication: HEPATITIS C
     Dosage: 10 MU QD-TIW* INRAMUSCULAR
     Route: 030
     Dates: start: 20020309, end: 20020806
  4. NIFEDIPINE [Concomitant]
  5. URSODEOXYCHOLIC ACID [Concomitant]
  6. GLYCYRON TABLETS [Concomitant]
  7. LOXOPROFEN SODIUM TABLETS [Concomitant]
  8. SUCRALFATE TABLETS [Concomitant]

REACTIONS (7)
  - ALOPECIA [None]
  - ANOREXIA [None]
  - MALAISE [None]
  - PRURITUS [None]
  - TINNITUS [None]
  - TOXIC SKIN ERUPTION [None]
  - WEIGHT DECREASED [None]
